FAERS Safety Report 9458398 (Version 1)
Quarter: 2013Q3

REPORT INFORMATION
  Report Type: Spontaneous
  Country: GB (occurrence: GB)
  Receive Date: 20130814
  Receipt Date: 20130814
  Transmission Date: 20140515
  Serious: Yes (Death, Hospitalization)
  Sender: FDA-Public Use
  Company Number: GB-WATSON-2013-14217

PATIENT
  Sex: 0

DRUGS (2)
  1. ALLOPURINOL (UNKNOWN) [Suspect]
     Indication: GOUT
     Dosage: UNK, UNKNOWN
     Route: 048
     Dates: start: 201102, end: 201103
  2. COLCHICINE (WATSON LABORATORIES) [Suspect]
     Indication: GOUT
     Dosage: UNK, UNKNOWN
     Route: 048

REACTIONS (9)
  - Rash [Fatal]
  - Rash pruritic [Fatal]
  - Renal failure [Fatal]
  - Malaise [Fatal]
  - Accidental death [Fatal]
  - Pain [Fatal]
  - Circulatory collapse [Fatal]
  - Toxicity to various agents [Fatal]
  - Inflammation [Fatal]
